FAERS Safety Report 6617851-5 (Version None)
Quarter: 2010Q1

REPORT INFORMATION
  Report Type: 
  Country: None (occurrence: None)
  Receive Date: 20100308
  Receipt Date: 20100308
  Transmission Date: 20100710
  Serious: Yes (Hospitalization)
  Sender: FDA-Public Use
  Company Number: PHHO2006BE15429

PATIENT
  Sex: Female

DRUGS (6)
  1. ZOLEDRONIC ACID [Suspect]
     Indication: OSTEOPOROSIS POSTMENOPAUSAL
     Dosage: UNK
     Route: 042
     Dates: start: 20030110
  2. CALCIUM CARBONATE [Concomitant]
  3. VITAMIN D [Concomitant]
  4. INDAPAMIDE [Concomitant]
  5. AMLOR [Concomitant]
  6. LEVOFLOXACIN [Suspect]

REACTIONS (4)
  - GASTROENTERITIS [None]
  - HYPONATRAEMIA [None]
  - MENTAL IMPAIRMENT [None]
  - URINARY TRACT INFECTION [None]
